FAERS Safety Report 5687316-6 (Version None)
Quarter: 2008Q1

REPORT INFORMATION
  Report Type: 
  Country: None (occurrence: None)
  Receive Date: 20080328
  Receipt Date: 20061117
  Transmission Date: 20080703
  Serious: No
  Sender: FDA-Public Use
  Company Number: US-BAYER-US-2006-036223

PATIENT
  Age: 36 Year
  Sex: Female
  Weight: 63 kg

DRUGS (3)
  1. MIRENA [Suspect]
     Indication: CONTRACEPTION
     Route: 015
     Dates: start: 20060609
  2. TESTOSTERONE [Concomitant]
     Route: 003
     Dates: end: 20061019
  3. PROGESTERONE [Concomitant]
     Route: 003
     Dates: end: 20061019

REACTIONS (5)
  - ABDOMINAL DISTENSION [None]
  - FATIGUE [None]
  - HOT FLUSH [None]
  - MALAISE [None]
  - WEIGHT INCREASED [None]
